FAERS Safety Report 8718322 (Version 2)
Quarter: 2012Q4

REPORT INFORMATION
  Report Type: 
  Country: US (occurrence: US)
  Receive Date: 20120810
  Receipt Date: 20121207
  Transmission Date: 20130627
  Serious: Yes (Other)
  Sender: FDA-Public Use
  Company Number: CHPA2012US016926

PATIENT
  Sex: Female

DRUGS (2)
  1. NODOZ [Suspect]
     Indication: FATIGUE
     Dosage: 1/4 tablet, twice daily as needed
     Route: 048
  2. NODOZ [Suspect]
     Dosage: 1/2 a tablet, Unk
     Route: 048

REACTIONS (3)
  - Upper limb fracture [Recovered/Resolved]
  - Intentional drug misuse [Unknown]
  - Underdose [Unknown]
